FAERS Safety Report 15660448 (Version 1)
Quarter: 2018Q4

REPORT INFORMATION
  Report Type: Spontaneous
  Country: US (occurrence: US)
  Receive Date: 20181115
  Receipt Date: 20181115
  Transmission Date: 20190205
  Serious: No
  Sender: FDA-Public Use
  Company Number: None

PATIENT
  Age: 71 Year
  Sex: Female

DRUGS (1)
  1. TALTZ [Suspect]
     Active Substance: IXEKIZUMAB
     Indication: PSORIASIS
     Dosage: INJECT 80MG (1 PEN) SUBCUTANEOUSLY AT WEEK 12 THEN  EVERY 4 WEEKS  AS DIRECTED
     Route: 058
     Dates: start: 201809

REACTIONS (1)
  - Visual impairment [None]
